FAERS Safety Report 24339383 (Version 7)
Quarter: 2025Q3

REPORT INFORMATION
  Report Type: Report from Study
  Country: GB (occurrence: GB)
  Receive Date: 20240919
  Receipt Date: 20250929
  Transmission Date: 20251020
  Serious: Yes (Hospitalization, Other)
  Sender: Unknown Manufacturer
  Company Number: GB-MIRUM PHARMACEUTICALS, INC.-GB-MIR-24-00848

PATIENT

DRUGS (2)
  1. MARALIXIBAT CHLORIDE [Suspect]
     Active Substance: MARALIXIBAT CHLORIDE
     Indication: Alagille syndrome
     Dosage: 40 MICROGRAM/KILOGRAM, QD
     Route: 048
     Dates: start: 20211207, end: 20230919
  2. MARALIXIBAT CHLORIDE [Suspect]
     Active Substance: MARALIXIBAT CHLORIDE
     Indication: Pruritus

REACTIONS (3)
  - Liver transplant [Recovered/Resolved]
  - Pruritus [Unknown]
  - Drug ineffective [Unknown]

NARRATIVE: CASE EVENT DATE: 20230919
